FAERS Safety Report 7931920-9 (Version None)
Quarter: 2011Q4

REPORT INFORMATION
  Report Type: 
  Country: None (occurrence: None)
  Receive Date: 20111121
  Receipt Date: 20111110
  Transmission Date: 20120403
  Serious: Yes (Other)
  Sender: FDA-Public Use
  Company Number: US-BAYER-2011-034344

PATIENT
  Age: 20 Year
  Sex: Female
  Weight: 72.562 kg

DRUGS (7)
  1. YAZ [Suspect]
     Indication: CONTRACEPTION
     Dosage: UNK
     Dates: start: 20071201, end: 20080101
  2. YASMIN [Suspect]
     Indication: CONTRACEPTION
     Dosage: UNK
     Dates: start: 20070409, end: 20071210
  3. CLARITIN [Concomitant]
     Dosage: UNK
     Route: 048
     Dates: start: 19970101
  4. KETOROLAC TROMETHAMINE [Concomitant]
     Dosage: 10 MG, UNK
     Route: 048
     Dates: start: 20071001
  5. AMOXICILLIN [Concomitant]
     Dosage: 500 MG, UNK
     Route: 048
     Dates: start: 20080103
  6. AZITHROMYCIN [Concomitant]
     Dosage: 250 MG, UNK
     Route: 048
     Dates: start: 20071001
  7. MAXALT [Concomitant]
     Route: 048

REACTIONS (7)
  - INJURY [None]
  - ARTERIAL THROMBOSIS LIMB [None]
  - DEEP VEIN THROMBOSIS [None]
  - PAIN IN EXTREMITY [None]
  - PAIN [None]
  - OEDEMA PERIPHERAL [None]
  - THROMBOPHLEBITIS SUPERFICIAL [None]
